FAERS Safety Report 4510103-9 (Version None)
Quarter: 2004Q4

REPORT INFORMATION
  Report Type: 
  Country: None (occurrence: None)
  Receive Date: 20041124
  Receipt Date: 20041112
  Transmission Date: 20050328
  Serious: Yes (Other)
  Sender: FDA-Public Use
  Company Number: US-JNJFOC-20041103787

PATIENT
  Sex: Male

DRUGS (20)
  1. INFLIXIMAB [Suspect]
     Indication: RHEUMATOID ARTHRITIS
     Route: 042
  2. AMBIEN [Concomitant]
  3. FOLIC ACID [Concomitant]
  4. MULTI-VITAMIN [Concomitant]
  5. MULTI-VITAMIN [Concomitant]
  6. MULTI-VITAMIN [Concomitant]
  7. MULTI-VITAMIN [Concomitant]
  8. MULTI-VITAMIN [Concomitant]
  9. MULTI-VITAMIN [Concomitant]
  10. MULTI-VITAMIN [Concomitant]
  11. MULTI-VITAMIN [Concomitant]
     Dosage: DAILY
  12. PERCOCET [Concomitant]
  13. PERCOCET [Concomitant]
     Indication: RHEUMATOID ARTHRITIS
     Dosage: DAILY
  14. PREDNISONE [Concomitant]
  15. PRILOSEC [Concomitant]
  16. TYLENOL [Concomitant]
  17. ADVIL [Concomitant]
  18. METHOTREXATE [Concomitant]
  19. HUMIRA [Concomitant]
  20. ANDRODERM [Concomitant]

REACTIONS (1)
  - BASAL CELL CARCINOMA [None]
